FAERS Safety Report 9617719 (Version 1)
Quarter: 2013Q4

REPORT INFORMATION
  Report Type: Spontaneous
  Country: JP (occurrence: None)
  Receive Date: 20131009
  Receipt Date: 20131009
  Transmission Date: 20140711
  Serious: Yes (Death)
  Sender: FDA-Public Use
  Company Number: KAD201310-001291

PATIENT
  Age: 50 Year
  Sex: Male

DRUGS (2)
  1. AMPHOTERICIN B (AMPHOTERICIN B) [Suspect]
     Indication: ZYGOMYCOSIS
  2. ENDOXAN(ENDOXAN) [Concomitant]

REACTIONS (2)
  - Pneumothorax [None]
  - Drug ineffective for unapproved indication [None]
